FAERS Safety Report 4976278-2 (Version None)
Quarter: 2006Q2

REPORT INFORMATION
  Report Type: 
  Country: None (occurrence: None)
  Receive Date: 20060419
  Receipt Date: 20060406
  Transmission Date: 20061013
  Serious: Yes (Other)
  Sender: FDA-Public Use
  Company Number: US-ROCHE-443767

PATIENT
  Age: 67 Year
  Sex: Female
  Weight: 113.4 kg

DRUGS (5)
  1. BONIVA [Suspect]
     Indication: OSTEOPOROSIS
     Route: 048
     Dates: start: 20051215
  2. FOSINOPRIL [Concomitant]
     Route: 048
  3. VERAPAMIL [Concomitant]
     Route: 048
  4. LEVOXYL [Concomitant]
     Indication: HYPOTHYROIDISM
     Route: 048
  5. 1 CONCOMITANT DRUG [Concomitant]
     Dosage: DRUG REPORTED AS ROBOSTATIN
     Route: 048

REACTIONS (3)
  - CHEST PAIN [None]
  - RENAL IMPAIRMENT [None]
  - SHOULDER PAIN [None]
